FAERS Safety Report 8451700-8 (Version None)
Quarter: 2012Q2

REPORT INFORMATION
  Report Type: 
  Country: None (occurrence: None)
  Receive Date: 20120620
  Receipt Date: 20120314
  Transmission Date: 20120825
  Serious: No
  Sender: FDA-Public Use
  Company Number: US-VERTEX PHARMACEUTICALS INC.-AE-2012-003656

PATIENT
  Sex: Female
  Weight: 63.378 kg

DRUGS (27)
  1. PEGASYS [Concomitant]
     Indication: HEPATITIS C
     Route: 058
     Dates: start: 20120305
  2. SEREVENT [Concomitant]
  3. SINGULAIR [Concomitant]
  4. LEXAPRO [Concomitant]
  5. VITAMIN D [Concomitant]
  6. RIBASPHERE [Concomitant]
     Indication: HEPATITIS C
     Route: 048
     Dates: start: 20120305
  7. METOPROLOL TARTRATE [Concomitant]
  8. THERAPEUTIC M CAPLET [Concomitant]
  9. PLAQUENIL [Concomitant]
  10. INCIVEK [Suspect]
     Indication: HEPATITIS C
     Route: 048
     Dates: start: 20120305
  11. PROVENTIL-HFA [Concomitant]
  12. FORTEO [Concomitant]
     Route: 058
  13. ALLEGRA [Concomitant]
  14. TESSALON [Concomitant]
  15. TUSSIONEX [Concomitant]
  16. OSCAL-D [Concomitant]
  17. ENALAPRIL MALEATE [Concomitant]
  18. ACETAMINOPHEN [Concomitant]
  19. LEVOCETIRIZINE DIHYDROCHLORIDE [Concomitant]
  20. HYDROXYZINE [Concomitant]
  21. PREVACID DR [Concomitant]
  22. SYNTHROID [Concomitant]
  23. ALVESCO [Concomitant]
  24. TRAMADOL HCL [Concomitant]
  25. SULFASALAZINE [Concomitant]
  26. METHYLPREDNISOLONE [Concomitant]
  27. THEOPHYLLINE-SR [Concomitant]

REACTIONS (8)
  - FLATULENCE [None]
  - FATIGUE [None]
  - PRURITUS [None]
  - HEADACHE [None]
  - ABDOMINAL DISTENSION [None]
  - ANORECTAL DISCOMFORT [None]
  - DIARRHOEA [None]
  - HAEMORRHOIDS [None]
